FAERS Safety Report 9733025 (Version 2)
Quarter: 2013Q4

REPORT INFORMATION
  Report Type: Spontaneous
  Country: JP (occurrence: JP)
  Receive Date: 20131205
  Receipt Date: 20131205
  Transmission Date: 20140711
  Serious: Yes (Life-Threatening, Other)
  Sender: FDA-Public Use
  Company Number: JP-WATSON-2013-20488

PATIENT
  Age: 30 Year
  Sex: Male
  Weight: 65 kg

DRUGS (8)
  1. REMIFENTANIL (UNKNOWN) [Suspect]
     Indication: INDUCTION AND MAINTENANCE OF ANAESTHESIA
     Dosage: 0.05-0.3 ?G/KG/MIN, CONTINUOUS INFUSION
     Route: 042
  2. REMIFENTANIL (UNKNOWN) [Suspect]
     Dosage: 0.3 ?G/KG/MIN
     Route: 042
  3. REMIFENTANIL (UNKNOWN) [Suspect]
     Dosage: 0.5 ?G/KG/MIN
     Route: 042
  4. FENTANYL (UNKNOWN) [Suspect]
     Indication: AGITATION POSTOPERATIVE
     Dosage: 100 ?G, SINGLE
     Route: 042
  5. FENTANYL (UNKNOWN) [Suspect]
     Dosage: 100 ?G, SINGLE
     Route: 042
  6. PROPOFOL [Concomitant]
     Indication: INDUCTION OF ANAESTHESIA
     Dosage: 120 MG, SINGLE
     Route: 042
  7. ROCURONIUM [Concomitant]
     Indication: INDUCTION OF ANAESTHESIA
     Dosage: 70 MG, SINGLE
     Route: 042
  8. SEVOFLURANE [Concomitant]
     Indication: MAINTENANCE OF ANAESTHESIA
     Dosage: 1.5 % IN OXYGEN
     Route: 065

REACTIONS (5)
  - Respiratory arrest [Recovered/Resolved]
  - Delayed recovery from anaesthesia [Recovered/Resolved]
  - Airway complication of anaesthesia [Recovered/Resolved]
  - Agitation postoperative [Recovered/Resolved]
  - Catheter site extravasation [Unknown]
